FAERS Safety Report 17680705 (Version 1)
Quarter: 2020Q2

REPORT INFORMATION
  Report Type: Spontaneous
  Country: CA (occurrence: CA)
  Receive Date: 20200417
  Receipt Date: 20200417
  Transmission Date: 20200714
  Serious: Yes (Other)
  Sender: FDA-Public Use
  Company Number: CA-TEVA-2020-CA-1222974

PATIENT
  Age: 59 Year
  Sex: Male

DRUGS (10)
  1. CIMETIDINE [Concomitant]
     Active Substance: CIMETIDINE
  2. EMEND [Concomitant]
     Active Substance: APREPITANT
     Indication: NAUSEA
  3. BEVACIZUMAB. [Suspect]
     Active Substance: BEVACIZUMAB
     Indication: COLORECTAL CANCER
     Route: 042
  4. OXALIPLATIN. [Suspect]
     Active Substance: OXALIPLATIN
     Indication: PRODUCT USED FOR UNKNOWN INDICATION
     Route: 065
  5. DICHLOROACETIC ACID [Concomitant]
     Active Substance: DICHLOROACETIC ACID
  6. GRANISETRON HYDROCHLORIDE. [Concomitant]
     Active Substance: GRANISETRON HYDROCHLORIDE
     Route: 065
  7. DOCOSAHEXAENOIC ACID;EICOSAPENTAENOIC ACID [Concomitant]
     Active Substance: DOCONEXENT\ICOSAPENT
  8. CELEBREX [Concomitant]
     Active Substance: CELECOXIB
  9. XELODA [Concomitant]
     Active Substance: CAPECITABINE
  10. IRINOTECAN HYDROCHLORIDE. [Suspect]
     Active Substance: IRINOTECAN HYDROCHLORIDE
     Indication: PRODUCT USED FOR UNKNOWN INDICATION
     Route: 065

REACTIONS (2)
  - Hypertension [Unknown]
  - Dyspnoea [Unknown]
